FAERS Safety Report 4519794-X (Version None)
Quarter: 2004Q4

REPORT INFORMATION
  Report Type: 
  Country: None (occurrence: None)
  Receive Date: 20041202
  Receipt Date: 20041202
  Transmission Date: 20050328
  Serious: Yes (Hospitalization)
  Sender: FDA-Public Use
  Company Number: None

PATIENT
  Sex: Female
  Weight: 61 kg

DRUGS (3)
  1. PACLITAXEL [Suspect]
     Indication: PERITONEAL CARCINOMA
     Dosage: 175 MG/M2, 3/52 IV
     Route: 042
     Dates: start: 20040518, end: 20040720
  2. CARBOPLATIN [Suspect]
     Indication: PERITONEAL CARCINOMA
     Dosage: AUC 5, 3/52 IV
     Route: 042
     Dates: start: 20040518, end: 20040720
  3. PARACETAMOL [Concomitant]

REACTIONS (6)
  - ANAEMIA [None]
  - BODY TEMPERATURE INCREASED [None]
  - CHILLS [None]
  - EPISTAXIS [None]
  - TACHYCARDIA [None]
  - THROMBOCYTOPENIA [None]
